FAERS Safety Report 8082666-0 (Version None)
Quarter: 2012Q1

REPORT INFORMATION
  Report Type: 
  Country: None (occurrence: None)
  Receive Date: 20120127
  Receipt Date: 20110223
  Transmission Date: 20120608
  Serious: No
  Sender: FDA-Public Use
  Company Number: US-ABBOTT-11P-163-0707495-00

PATIENT
  Sex: Male
  Weight: 90.8 kg

DRUGS (3)
  1. LISINOPRIL [Concomitant]
     Indication: BLOOD PRESSURE
  2. HUMIRA [Suspect]
     Indication: PSORIASIS
     Dates: start: 20110105
  3. CRESTOR [Concomitant]
     Indication: BLOOD CHOLESTEROL INCREASED

REACTIONS (1)
  - MYALGIA [None]
